FAERS Safety Report 6144373-0 (Version None)
Quarter: 2009Q2

REPORT INFORMATION
  Report Type: 
  Country: None (occurrence: None)
  Receive Date: 20090406
  Receipt Date: 20090331
  Transmission Date: 20091009
  Serious: Yes (Other)
  Sender: FDA-Public Use
  Company Number: IN-ELI_LILLY_AND_COMPANY-IN200903007689

PATIENT
  Age: 83 Year
  Sex: Female
  Weight: 105 kg

DRUGS (6)
  1. EXENATIDE [Suspect]
     Indication: DIABETES MELLITUS
     Dosage: 5 UG, 2/D
     Route: 058
     Dates: start: 20090328, end: 20090328
  2. EXENATIDE [Suspect]
     Dosage: 5 UG, 2/D
     Route: 058
     Dates: start: 20090330, end: 20090330
  3. GLUCORED [Concomitant]
     Indication: DIABETES MELLITUS
     Dosage: UNK, 2/D
  4. TELMISARTAN [Concomitant]
     Indication: HYPERTENSION
     Dosage: 40 MG, 2/D
  5. BECOSULES /01353601/ [Concomitant]
     Indication: VITAMIN SUPPLEMENTATION
     Dosage: UNK, 2/D
  6. PANTOPRAZOLE SODIUM [Concomitant]
     Indication: ANTACID THERAPY
     Dosage: 20 MG, 2/D

REACTIONS (1)
  - VOMITING [None]
